FAERS Safety Report 9190385 (Version 1)
Quarter: 2013Q1

REPORT INFORMATION
  Report Type: Spontaneous
  Country: US (occurrence: None)
  Receive Date: 20130325
  Receipt Date: 20130325
  Transmission Date: 20140127
  Serious: Yes (Other)
  Sender: FDA-Public Use
  Company Number: None

PATIENT
  Age: 54 Year
  Sex: Female
  Weight: 90.72 kg

DRUGS (1)
  1. CYMBALTA 60MG LILY [Suspect]
     Indication: OSTEOARTHRITIS
     Dosage: 60MG DAILY PO
     Route: 048
     Dates: start: 20120905, end: 20130317

REACTIONS (2)
  - Tongue discolouration [None]
  - Mass [None]
